FAERS Safety Report 15332063 (Version 1)
Quarter: 2018Q3

REPORT INFORMATION
  Report Type: Spontaneous
  Country: KR (occurrence: KR)
  Receive Date: 20180829
  Receipt Date: 20180829
  Transmission Date: 20181010
  Serious: Yes (Hospitalization)
  Sender: FDA-Public Use
  Company Number: KR-ABBVIE-18S-090-2468454-00

PATIENT
  Age: 41 Year
  Sex: Female

DRUGS (1)
  1. LUCRIN [Suspect]
     Active Substance: LEUPROLIDE ACETATE
     Indication: GENERAL SYMPTOM
     Dosage: TWICE, 4 WEEKS APART
     Route: 058

REACTIONS (1)
  - Posterior reversible encephalopathy syndrome [Recovering/Resolving]
